FAERS Safety Report 6300939-6 (Version None)
Quarter: 2009Q3

REPORT INFORMATION
  Report Type: 
  Country: None (occurrence: None)
  Receive Date: 20090806
  Receipt Date: 20090806
  Transmission Date: 20100115
  Serious: No
  Sender: FDA-Public Use
  Company Number: None

PATIENT
  Age: 49 Year
  Sex: Female
  Weight: 68.0396 kg

DRUGS (2)
  1. DIPRIVAN [Suspect]
     Indication: SURGERY
     Dosage: INJECTED IV
     Route: 042
  2. BACTERIAL ENDOTOXINS [Concomitant]

REACTIONS (5)
  - INFLUENZA LIKE ILLNESS [None]
  - MENTAL IMPAIRMENT [None]
  - POOR QUALITY DRUG ADMINISTERED [None]
  - PRODUCT CONTAMINATION MICROBIAL [None]
  - URINARY TRACT INFECTION BACTERIAL [None]
